FAERS Safety Report 8354128-4 (Version None)
Quarter: 2012Q2

REPORT INFORMATION
  Report Type: 
  Country: None (occurrence: None)
  Receive Date: 20120511
  Receipt Date: 20120430
  Transmission Date: 20120825
  Serious: Yes (Other)
  Sender: FDA-Public Use
  Company Number: PHHY2012TR039439

PATIENT
  Age: 62 Year
  Sex: Female

DRUGS (1)
  1. ERGOTAMINE TARTRATE [Suspect]
     Indication: MIGRAINE
     Dosage: 0.75 MG, DAILY

REACTIONS (5)
  - BUNDLE BRANCH BLOCK LEFT [None]
  - ELECTROCARDIOGRAM T WAVE INVERSION [None]
  - SINUS TACHYCARDIA [None]
  - ARTERIOSPASM CORONARY [None]
  - ANGINA PECTORIS [None]
